FAERS Safety Report 25797536 (Version 1)
Quarter: 2025Q3

REPORT INFORMATION
  Report Type: Spontaneous
  Country: US (occurrence: US)
  Receive Date: 20250912
  Receipt Date: 20250912
  Transmission Date: 20251020
  Serious: Yes (Hospitalization)
  Sender: AMGEN
  Company Number: US-AMGEN-USASP2025175764

PATIENT

DRUGS (3)
  1. PREDNISONE [Suspect]
     Active Substance: PREDNISONE
     Indication: Vasculitis
     Dosage: UNK MILLIGRAM, QD (MG/DAY)
     Route: 065
  2. RITUXIMAB [Suspect]
     Active Substance: RITUXIMAB
     Indication: Vasculitis
     Route: 065
  3. INFLIXIMAB [Suspect]
     Active Substance: INFLIXIMAB
     Indication: Vasculitis
     Route: 065

REACTIONS (12)
  - Unevaluable event [Unknown]
  - Infection [Unknown]
  - Vasculitis [Unknown]
  - Pain [Unknown]
  - Fatigue [Unknown]
  - Depression [Unknown]
  - General physical health deterioration [Unknown]
  - Ill-defined disorder [Unknown]
  - Illness [Unknown]
  - Asthenia [Unknown]
  - Fracture [Unknown]
  - Off label use [Unknown]
